FAERS Safety Report 8315658-4 (Version None)
Quarter: 2012Q2

REPORT INFORMATION
  Report Type: 
  Country: None (occurrence: None)
  Receive Date: 20120426
  Receipt Date: 20120329
  Transmission Date: 20120825
  Serious: Yes (Death, Hospitalization)
  Sender: FDA-Public Use
  Company Number: PT-BAXTER-2012BAX001550

PATIENT
  Sex: Female

DRUGS (4)
  1. PREDNISOLONE [Concomitant]
     Route: 048
     Dates: start: 20111206, end: 20111227
  2. CYCLOPHOSPHAMIDE [Suspect]
     Indication: POLYARTERITIS NODOSA
     Route: 042
     Dates: start: 20111206, end: 20111227
  3. CYCLOPHOSPHAMIDE [Suspect]
     Dosage: PRIMEIRA UTILIZAC?O
     Route: 042
     Dates: start: 20111206, end: 20111227
  4. PREDNISOLONE [Concomitant]
     Indication: POLYARTERITIS NODOSA
     Route: 048
     Dates: start: 20110801, end: 20120201

REACTIONS (1)
  - PNEUMONITIS [None]
